FAERS Safety Report 6271016-8 (Version None)
Quarter: 2009Q3

REPORT INFORMATION
  Report Type: 
  Country: None (occurrence: None)
  Receive Date: 20090716
  Receipt Date: 20090630
  Transmission Date: 20100115
  Serious: No
  Sender: FDA-Public Use
  Company Number: US-JNJFOC-20090406836

PATIENT
  Sex: Male
  Weight: 138.8 kg

DRUGS (11)
  1. INVEGA [Suspect]
     Indication: BIPOLAR DISORDER
     Route: 048
  2. PREVACID [Concomitant]
     Indication: GASTROOESOPHAGEAL REFLUX DISEASE
     Route: 048
  3. THEOPHYLLINE [Concomitant]
     Indication: LUNG DISORDER
     Route: 048
  4. OXCARBAZEPINE [Concomitant]
     Indication: MENTAL DISORDER
     Route: 048
  5. EFFEXOR XR [Concomitant]
     Indication: MENTAL DISORDER
     Route: 048
  6. CLONAZEPAM [Concomitant]
     Indication: MENTAL DISORDER
     Route: 048
  7. ADVAIR HFA [Concomitant]
     Indication: ASTHMA
     Dosage: 250/50 MCG
     Route: 055
  8. METOPROLOL SUCCINATE [Concomitant]
     Indication: BLOOD PRESSURE
  9. LIPITOR [Concomitant]
     Indication: BLOOD CHOLESTEROL ABNORMAL
     Route: 048
  10. SINGULAIR [Concomitant]
     Indication: ASTHMA
     Route: 048
  11. SPIRIVA [Concomitant]
     Indication: ASTHMA
     Route: 055

REACTIONS (2)
  - HAEMATOCHEZIA [None]
  - RECTAL HAEMORRHAGE [None]
